FAERS Safety Report 24597618 (Version 4)
Quarter: 2025Q1

REPORT INFORMATION
  Report Type: Spontaneous
  Country: US (occurrence: US)
  Receive Date: 20241110
  Receipt Date: 20250123
  Transmission Date: 20250409
  Serious: No
  Sender: SANOFI AVENTIS
  Company Number: US-SA-2024SA198229

PATIENT
  Age: 61 Year
  Sex: Female
  Weight: 78.005 kg

DRUGS (1)
  1. DUPIXENT [Suspect]
     Active Substance: DUPILUMAB
     Indication: Eosinophilic oesophagitis
     Dosage: 300 MG, QW
     Route: 058

REACTIONS (9)
  - Weight decreased [Unknown]
  - Pyrexia [Unknown]
  - Lip blister [Unknown]
  - Blister [Unknown]
  - Hypoaesthesia oral [Unknown]
  - Ageusia [Unknown]
  - Nervousness [Unknown]
  - Muscular weakness [Unknown]
  - Pain in extremity [Unknown]
